FAERS Safety Report 22188702 (Version 1)
Quarter: 2023Q2

REPORT INFORMATION
  Report Type: Spontaneous
  Country: IN (occurrence: IN)
  Receive Date: 20230409
  Receipt Date: 20230409
  Transmission Date: 20230722
  Serious: Yes (Other)
  Sender: FDA-Public Use
  Company Number: IN-002147023-NVSC2023IN076949

PATIENT
  Age: 73 Year
  Sex: Female

DRUGS (4)
  1. RIBOCICLIB [Suspect]
     Active Substance: RIBOCICLIB
     Indication: Breast cancer metastatic
     Dosage: 400 MG, QD
     Route: 065
     Dates: start: 20220309, end: 20220609
  2. RIBOCICLIB [Suspect]
     Active Substance: RIBOCICLIB
     Dosage: 600 MG, QD
     Route: 065
     Dates: start: 20220610, end: 20220913
  3. RIBOCICLIB [Suspect]
     Active Substance: RIBOCICLIB
     Dosage: 400 MG, QD
     Route: 065
     Dates: start: 20220914, end: 20221011
  4. RIBOCICLIB [Suspect]
     Active Substance: RIBOCICLIB
     Dosage: 600 MG, QD
     Route: 065
     Dates: start: 20221012

REACTIONS (11)
  - Acute kidney injury [Unknown]
  - Dehydration [Unknown]
  - Kidney infection [Unknown]
  - Hypersensitivity [Unknown]
  - Vomiting [Recovered/Resolved]
  - Breast ulceration [Unknown]
  - Chest wall mass [Unknown]
  - Alanine aminotransferase increased [Unknown]
  - White blood cell count decreased [Unknown]
  - Urinary tract infection [Unknown]
  - Haemoglobin decreased [Unknown]

NARRATIVE: CASE EVENT DATE: 20220301
